FAERS Safety Report 8679817 (Version 2)
Quarter: 2012Q4

REPORT INFORMATION
  Report Type: 
  Country: US (occurrence: US)
  Receive Date: 20120724
  Receipt Date: 20120914
  Transmission Date: 20130627
  Serious: Yes (Hospitalization, Other)
  Sender: FDA-Public Use
  Company Number: US-ELI_LILLY_AND_COMPANY-US201207003900

PATIENT
  Age: 69 Year
  Sex: Female

DRUGS (15)
  1. HUMULIN REGULAR [Suspect]
     Indication: DIABETES MELLITUS
     Dosage: 32 u, each morning
  2. HUMULIN REGULAR [Suspect]
     Dosage: 36 u, each evening
  3. CYMBALTA [Suspect]
     Indication: POST HERPETIC NEURALGIA
     Dosage: UNK, single
     Dates: start: 20120705, end: 20120705
  4. LYRICA [Concomitant]
     Indication: POST HERPETIC NEURALGIA
  5. NEURONTIN [Concomitant]
     Indication: POST HERPETIC NEURALGIA
     Dosage: UNK
     Dates: end: 20120705
  6. ASPIRIN [Concomitant]
     Dosage: 325 mg, qd
  7. OXYGEN [Concomitant]
     Dosage: 2 l, other
  8. PLAVIX [Concomitant]
     Dosage: 75 mg, qd
  9. ATENOLOL [Concomitant]
     Dosage: 50 mg, bid
  10. XANAX [Concomitant]
     Dosage: 0.25 mg, tid
  11. LASIX [Concomitant]
     Dosage: 40 mg, bid
  12. LEVOTHYROXINE [Concomitant]
     Dosage: 100 ug, qd
  13. THEOPHYLLINE [Concomitant]
     Dosage: 200 mg, bid
  14. BROVANA [Concomitant]
     Dosage: UNK, prn
  15. DUONEB [Concomitant]
     Dosage: UNK, prn

REACTIONS (5)
  - Acute coronary syndrome [Recovered/Resolved]
  - Acute myocardial infarction [Recovered/Resolved]
  - Nausea [Recovered/Resolved]
  - Off label use [Recovered/Resolved]
  - Asthenia [Recovered/Resolved]
